FAERS Safety Report 24154590 (Version 2)
Quarter: 2024Q3

REPORT INFORMATION
  Report Type: Spontaneous
  Country: FR (occurrence: FR)
  Receive Date: 20240731
  Receipt Date: 20240809
  Transmission Date: 20241017
  Serious: Yes (Other)
  Sender: AUROBINDO
  Company Number: FR-AFSSAPS-LM2024000423

PATIENT
  Age: 1 Day
  Sex: Female
  Weight: 2.63 kg

DRUGS (7)
  1. ESOMEPRAZOLE [Suspect]
     Active Substance: ESOMEPRAZOLE
     Indication: Product used for unknown indication
     Dosage: 1 DOSAGE FORM, ONCE A DAY ( DOSAGE UNKNOWN)
     Route: 064
     Dates: start: 20220725
  2. BRINTELLIX [Suspect]
     Active Substance: VORTIOXETINE HYDROBROMIDE
     Indication: Depression
     Dosage: 1 DOSAGE FORM, ONCE A DAY (UNKNOWN DOSAGE)
     Route: 064
     Dates: start: 202212, end: 20230315
  3. CANDESARTAN CILEXETIL [Suspect]
     Active Substance: CANDESARTAN CILEXETIL
     Indication: Hypertension
     Dosage: 4 MILLIGRAM, ONCE A DAY
     Route: 064
     Dates: start: 20220725, end: 20230307
  4. DESOGESTREL [Suspect]
     Active Substance: DESOGESTREL
     Indication: Contraception
     Dosage: 75 MICROGRAM, ONCE A DAY
     Route: 064
     Dates: start: 20220725, end: 20230307
  5. LERCANIDIPINE HYDROCHLORIDE [Suspect]
     Active Substance: LERCANIDIPINE HYDROCHLORIDE
     Indication: Hypertension
     Dosage: 10 MILLIGRAM, ONCE A DAY
     Route: 064
     Dates: start: 20220725, end: 20230307
  6. NICARDIPINE HYDROCHLORIDE [Suspect]
     Active Substance: NICARDIPINE HYDROCHLORIDE
     Indication: Hypertension
     Dosage: 100 MILLIGRAM, ONCE A DAY
     Route: 064
     Dates: start: 20230308, end: 20230403
  7. REPEVAX [Suspect]
     Active Substance: DIPHTHERIA AND TETANUS TOXOIDS AND ACELLULAR PERTUSSIS ADSORBED AND INACTIVATED POLIOVIRUS VACCINE
     Indication: Pertussis immunisation
     Dosage: 1 DOSAGE FORM
     Route: 064
     Dates: start: 20230314, end: 20230314

REACTIONS (3)
  - Maternal exposure during pregnancy [Recovered/Resolved]
  - Term birth [Recovered/Resolved]
  - Normal newborn [Recovered/Resolved]

NARRATIVE: CASE EVENT DATE: 20230403
